FAERS Safety Report 21361788 (Version 1)
Quarter: 2022Q3

REPORT INFORMATION
  Report Type: Spontaneous
  Country: US (occurrence: US)
  Receive Date: 20220922
  Receipt Date: 20220922
  Transmission Date: 20221026
  Serious: Yes (Death, Life-Threatening, Hospitalization, Other)
  Sender: FDA-Public Use
  Company Number: US-AMGEN-USASP2022160377

PATIENT
  Age: 51 Year
  Sex: Male

DRUGS (4)
  1. RITUXIMAB [Suspect]
     Active Substance: RITUXIMAB
     Indication: Focal segmental glomerulosclerosis
     Dosage: 375 MILLIGRAM/M2
     Route: 065
  2. THYMOGLOBULIN [Concomitant]
     Active Substance: LAPINE T-LYMPHOCYTE IMMUNE GLOBULIN
     Dosage: 1.5 MILLIGRAM/KG
  3. MYCOPHENOLATE MOFETIL [Concomitant]
     Active Substance: MYCOPHENOLATE MOFETIL
     Dosage: 1000 MILLIGRAM, BID
     Route: 048
  4. TACROLIMUS [Concomitant]
     Active Substance: TACROLIMUS
     Dosage: 8-10 NG/ML

REACTIONS (13)
  - Death [Fatal]
  - Acute hepatic failure [Unknown]
  - Acute kidney injury [Unknown]
  - Adenoviral hepatitis [Unknown]
  - Kidney transplant rejection [Unknown]
  - General physical health deterioration [Unknown]
  - Hepatic steatosis [Unknown]
  - Haemodynamic instability [Unknown]
  - Malaise [Unknown]
  - Pyrexia [Unknown]
  - Leukopenia [Unknown]
  - Hyperkalaemia [Unknown]
  - Off label use [Unknown]
